FAERS Safety Report 7027783-9 (Version None)
Quarter: 2010Q4

REPORT INFORMATION
  Report Type: 
  Country: None (occurrence: None)
  Receive Date: 20101005
  Receipt Date: 20100914
  Transmission Date: 20110411
  Serious: Yes (Hospitalization)
  Sender: FDA-Public Use
  Company Number: US-BAYER-200941596NA

PATIENT
  Age: 45 Year
  Sex: Female
  Weight: 122 kg

DRUGS (3)
  1. YAZ [Suspect]
     Indication: PREMENSTRUAL SYNDROME
     Route: 048
     Dates: start: 20090401, end: 20090801
  2. OMEPRAZOLE [Concomitant]
  3. IRON [Concomitant]

REACTIONS (4)
  - BILIARY COLIC [None]
  - CHEST PAIN [None]
  - CHOLELITHIASIS [None]
  - SYNCOPE [None]
